FAERS Safety Report 4297591-0 (Version None)
Quarter: 2004Q1

REPORT INFORMATION
  Report Type: 
  Country: None (occurrence: None)
  Receive Date: 20040217
  Receipt Date: 20040217
  Transmission Date: 20041129
  Serious: Yes (Death)
  Sender: FDA-Public Use
  Company Number: None

PATIENT
  Age: 37 Year
  Sex: Male
  Weight: 137 kg

DRUGS (5)
  1. PROPOFOL [Suspect]
     Indication: STATUS EPILEPTICUS
     Dosage: IV -200 ML/HR X 24 HOURS
     Route: 042
  2. DILANTIN [Concomitant]
  3. KEPPRA [Concomitant]
  4. TEGRETOL [Concomitant]
  5. ATIVAN [Concomitant]

REACTIONS (7)
  - ANURIA [None]
  - BUNDLE BRANCH BLOCK RIGHT [None]
  - HYPOPHOSPHATAEMIA [None]
  - HYPOTENSION [None]
  - METABOLIC ACIDOSIS [None]
  - RENAL FAILURE ACUTE [None]
  - RHABDOMYOLYSIS [None]
